FAERS Safety Report 8255720-8 (Version None)
Quarter: 2012Q2

REPORT INFORMATION
  Report Type: 
  Country: None (occurrence: None)
  Receive Date: 20120403
  Receipt Date: 20120403
  Transmission Date: 20120825
  Serious: Yes (Death)
  Sender: FDA-Public Use
  Company Number: None

PATIENT
  Age: 54 Year
  Sex: Female
  Weight: 47.173 kg

DRUGS (1)
  1. DURAGESIC-100 [Suspect]
     Indication: PAIN
     Dosage: 1- 75MCG
     Route: 062
     Dates: start: 20081221, end: 20081222

REACTIONS (1)
  - WRONG TECHNIQUE IN DRUG USAGE PROCESS [None]
